FAERS Safety Report 25361403 (Version 2)
Quarter: 2025Q3

REPORT INFORMATION
  Report Type: Spontaneous
  Country: JP (occurrence: JP)
  Receive Date: 20250527
  Receipt Date: 20250804
  Transmission Date: 20251021
  Serious: Yes (Other)
  Sender: BRISTOL-MYERS SQUIBB COMPANY
  Company Number: JP-BRISTOL-MYERS SQUIBB COMPANY-2025-074170

PATIENT
  Age: 75 Year
  Sex: Female

DRUGS (3)
  1. ABECMA [Suspect]
     Active Substance: IDECABTAGENE VICLEUCEL
     Indication: Plasma cell myeloma
     Route: 042
  2. SULFAMETHOXAZOLE\TRIMETHOPRIM [Concomitant]
     Active Substance: SULFAMETHOXAZOLE\TRIMETHOPRIM
     Indication: Prophylaxis
     Route: 048
  3. VALACYCLOVIR HYDROCHLORIDE [Concomitant]
     Active Substance: VALACYCLOVIR HYDROCHLORIDE
     Indication: Prophylaxis
     Route: 048

REACTIONS (8)
  - Cytokine release syndrome [Unknown]
  - Full blood count decreased [Unknown]
  - Human rhinovirus test positive [Unknown]
  - Enterovirus test positive [Unknown]
  - Influenza A virus test positive [Unknown]
  - Influenza virus test positive [Unknown]
  - SARS-CoV-2 test positive [Unknown]
  - Monoclonal immunoglobulin increased [Unknown]
